FAERS Safety Report 6745318-2 (Version None)
Quarter: 2010Q2

REPORT INFORMATION
  Report Type: 
  Country: None (occurrence: None)
  Receive Date: 20100528
  Receipt Date: 20100520
  Transmission Date: 20101027
  Serious: No
  Sender: FDA-Public Use
  Company Number: US-BIOGENIDEC-2010BI017115

PATIENT
  Age: 62 Year
  Sex: Male

DRUGS (2)
  1. TYSABRI [Suspect]
     Indication: MULTIPLE SCLEROSIS
     Route: 042
     Dates: start: 20070907, end: 20071231
  2. TYSABRI [Suspect]
     Route: 042
     Dates: start: 20091109

REACTIONS (3)
  - BALANCE DISORDER [None]
  - DRUG EFFECT DECREASED [None]
  - GAIT DISTURBANCE [None]
